FAERS Safety Report 10548487 (Version 1)
Quarter: 2014Q4

REPORT INFORMATION
  Report Type: Spontaneous
  Country: NL (occurrence: NL)
  Receive Date: 20141028
  Receipt Date: 20141028
  Transmission Date: 20150529
  Serious: Yes (Other)
  Sender: FDA-Public Use
  Company Number: NL-SA-2014SA141479

PATIENT
  Sex: Male

DRUGS (1)
  1. LEMTRADA [Suspect]
     Active Substance: ALEMTUZUMAB
     Route: 065

REACTIONS (5)
  - Headache [Unknown]
  - Pain in extremity [Unknown]
  - Loss of consciousness [Unknown]
  - Fatigue [Unknown]
  - Hypoaesthesia [Unknown]
